FAERS Safety Report 8962403 (Version 1)
Quarter: 2012Q4

REPORT INFORMATION
  Report Type: Spontaneous
  Country: AU (occurrence: None)
  Receive Date: 20121206
  Receipt Date: 20121206
  Transmission Date: 20130627
  Serious: Yes (Other)
  Sender: FDA-Public Use
  Company Number: AU-1195548

PATIENT
  Sex: Female

DRUGS (4)
  1. ISOPTO CARPINE [Suspect]
     Indication: INTRAOCULAR PRESSURE INCREASED
  2. BETOPTIC [Suspect]
     Indication: INTRAOCULAR PRESSURE INCREASED
  3. ACETAZOLAMIDE [Suspect]
     Indication: INTRAOCULAR PRESSURE INCREASED
  4. RANIBIZUMAB INJECTION [Concomitant]

REACTIONS (1)
  - Drug ineffective [None]
